FAERS Safety Report 21241429 (Version 2)
Quarter: 2022Q3

REPORT INFORMATION
  Report Type: Spontaneous
  Country: ES (occurrence: ES)
  Receive Date: 20220823
  Receipt Date: 20220824
  Transmission Date: 20221027
  Serious: Yes (Other)
  Sender: FDA-Public Use
  Company Number: ES-SUN PHARMACEUTICAL INDUSTRIES LTD-2019R1-214431

PATIENT
  Age: 21 Year
  Sex: Male

DRUGS (1)
  1. OCTREOTIDE [Suspect]
     Active Substance: OCTREOTIDE
     Indication: Naevus anaemicus
     Dosage: 20 GRAM, MONTHLY
     Route: 065
     Dates: end: 201408

REACTIONS (2)
  - Therapy non-responder [Unknown]
  - Osteonecrosis [Recovered/Resolved]
